FAERS Safety Report 6653636-1 (Version None)
Quarter: 2010Q1

REPORT INFORMATION
  Report Type: 
  Country: None (occurrence: None)
  Receive Date: 20100324
  Receipt Date: 20100308
  Transmission Date: 20100710
  Serious: Yes (Disabling)
  Sender: FDA-Public Use
  Company Number: 2010-0308

PATIENT
  Age: 46 Year
  Sex: Female
  Weight: 73 kg

DRUGS (2)
  1. DYSPORT [Suspect]
     Indication: SKIN WRINKLING
     Dosage: 120 UNITS (120 UNITS, SINGLE
     Dates: start: 20090612, end: 20090612
  2. BOTULINUM TOXIN TYPE A [Suspect]

REACTIONS (4)
  - HEADACHE [None]
  - NECK PAIN [None]
  - OFF LABEL USE [None]
  - VISUAL IMPAIRMENT [None]
